FAERS Safety Report 4854847-8 (Version None)
Quarter: 2005Q4

REPORT INFORMATION
  Report Type: 
  Country: None (occurrence: None)
  Receive Date: 20051215
  Receipt Date: 20051205
  Transmission Date: 20060501
  Serious: Yes (Life-Threatening)
  Sender: FDA-Public Use
  Company Number: JP-JNJFOC-20051201598

PATIENT
  Age: 82 Year
  Sex: Female

DRUGS (1)
  1. RISPERDAL [Suspect]
     Route: 048

REACTIONS (1)
  - RESPIRATORY DEPRESSION [None]
